FAERS Safety Report 6661448-8 (Version None)
Quarter: 2010Q1

REPORT INFORMATION
  Report Type: 
  Country: None (occurrence: None)
  Receive Date: 20100331
  Receipt Date: 20100324
  Transmission Date: 20100710
  Serious: Yes (Life-Threatening, Other)
  Sender: FDA-Public Use
  Company Number: US-MERCK-1003USA04003

PATIENT
  Age: 67 Year
  Sex: Male
  Weight: 98 kg

DRUGS (11)
  1. DECADRON [Suspect]
     Route: 048
  2. THALOMID [Suspect]
     Indication: DIARRHOEA
     Route: 048
     Dates: start: 20090921, end: 20091019
  3. THALOMID [Suspect]
     Route: 048
  4. THALOMID [Suspect]
     Indication: MULTIPLE MYELOMA
     Route: 048
     Dates: start: 20090921, end: 20091019
  5. THALOMID [Suspect]
     Route: 048
  6. GLIMEPIRIDE [Concomitant]
     Route: 065
  7. SIMVASTATIN [Concomitant]
     Route: 048
  8. GABAPENTIN [Concomitant]
     Route: 065
  9. DARVOCET-N 100 [Concomitant]
     Route: 065
  10. CYANOCOBALAMIN [Concomitant]
     Route: 065
  11. COUMADIN [Concomitant]
     Route: 065

REACTIONS (5)
  - HAEMOGLOBIN DECREASED [None]
  - NEUTROPHIL COUNT DECREASED [None]
  - PERSONALITY CHANGE [None]
  - PLATELET COUNT DECREASED [None]
  - WHITE BLOOD CELL COUNT DECREASED [None]
